FAERS Safety Report 9427781 (Version 1)
Quarter: 2013Q3

REPORT INFORMATION
  Report Type: Report from Study
  Country: US (occurrence: US)
  Receive Date: 20130730
  Receipt Date: 20130730
  Transmission Date: 20140515
  Serious: No
  Sender: FDA-Public Use
  Company Number: US-ABBOTT-12P-163-0969274-00

PATIENT
  Age: 66 Year
  Sex: Male
  Weight: 89.89 kg

DRUGS (8)
  1. NIASPAN (COATED) 1000MG [Suspect]
     Indication: HIGH DENSITY LIPOPROTEIN DECREASED
     Dosage: 2 PILLS (1000MG EACH) EVERY DAY
     Dates: start: 201101
  2. NIASPAN (COATED) 1000MG [Suspect]
     Dosage: 1000MG AT EVERY NIGHT
  3. VYTORIN [Concomitant]
     Indication: PRODUCT USED FOR UNKNOWN INDICATION
  4. ASPIRIN [Concomitant]
     Indication: PRODUCT USED FOR UNKNOWN INDICATION
  5. INDAPAMIDE [Concomitant]
     Indication: PRODUCT USED FOR UNKNOWN INDICATION
  6. LISINOPRIL [Concomitant]
     Indication: PRODUCT USED FOR UNKNOWN INDICATION
  7. VITAMINE [Concomitant]
     Indication: PRODUCT USED FOR UNKNOWN INDICATION
  8. METAXALONE [Concomitant]
     Indication: MUSCLE RELAXANT THERAPY

REACTIONS (4)
  - Osteoarthritis [Unknown]
  - Flushing [Not Recovered/Not Resolved]
  - Skin burning sensation [Not Recovered/Not Resolved]
  - Paraesthesia [Not Recovered/Not Resolved]
